FAERS Safety Report 14915437 (Version 1)
Quarter: 2018Q2

REPORT INFORMATION
  Report Type: Report from Study
  Country: IN (occurrence: IN)
  Receive Date: 20180518
  Receipt Date: 20180518
  Transmission Date: 20180711
  Serious: Yes (Death)
  Sender: FDA-Public Use
  Company Number: PHHY2018IN002960

PATIENT
  Age: 35 Year
  Sex: Male
  Weight: 54 kg

DRUGS (1)
  1. TASIGNA [Suspect]
     Active Substance: NILOTINIB
     Indication: CHRONIC MYELOID LEUKAEMIA
     Dosage: 400 MG, BID
     Route: 048

REACTIONS (3)
  - Pulmonary oedema [Fatal]
  - Ascites [Fatal]
  - Dyspnoea [Fatal]

NARRATIVE: CASE EVENT DATE: 201804
